FAERS Safety Report 19495921 (Version 2)
Quarter: 2021Q4

REPORT INFORMATION
  Report Type: Report from Study
  Country: US (occurrence: US)
  Receive Date: 20210706
  Receipt Date: 20211118
  Transmission Date: 20220303
  Serious: Yes (Hospitalization, Other)
  Sender: FDA-Public Use
  Company Number: US-SA-2019SA193365

PATIENT
  Age: 63 Year
  Sex: Male

DRUGS (4)
  1. DUPILUMAB [Suspect]
     Active Substance: DUPILUMAB
     Indication: Dermatitis atopic
     Dosage: 600 MG, 1X
     Route: 058
     Dates: start: 20170915, end: 20170915
  2. DUPILUMAB [Suspect]
     Active Substance: DUPILUMAB
     Indication: Neurodermatitis
     Dosage: 300 MG, QOW
     Route: 058
     Dates: start: 2017
  3. DUPILUMAB [Suspect]
     Active Substance: DUPILUMAB
     Dosage: 600 MG, 1X
     Route: 058
     Dates: start: 20180417, end: 20180417
  4. DUPILUMAB [Suspect]
     Active Substance: DUPILUMAB
     Dosage: 300 MG, QOW
     Route: 058
     Dates: start: 20180501

REACTIONS (12)
  - Renal failure [Unknown]
  - Back pain [Recovered/Resolved]
  - Flank pain [Unknown]
  - Renal impairment [Recovered/Resolved]
  - Prostate infection [Not Recovered/Not Resolved]
  - Hospitalisation [Unknown]
  - Chronic kidney disease [Not Recovered/Not Resolved]
  - Prostatomegaly [Recovering/Resolving]
  - Rash [Recovered/Resolved]
  - Erythema [Unknown]
  - Pruritus [Unknown]
  - Product dose omission issue [Unknown]

NARRATIVE: CASE EVENT DATE: 20200101
